FAERS Safety Report 24364575 (Version 1)
Quarter: 2024Q3

REPORT INFORMATION
  Report Type: Spontaneous
  Country: CN (occurrence: CN)
  Receive Date: 20240926
  Receipt Date: 20240926
  Transmission Date: 20241017
  Serious: Yes (Other)
  Sender: PFIZER
  Company Number: CN-PFIZER INC-PV202400088816

PATIENT
  Age: 30 Year
  Sex: Female

DRUGS (1)
  1. CRIZOTINIB [Suspect]
     Active Substance: CRIZOTINIB
     Dosage: 250 MG, BID
     Route: 048

REACTIONS (7)
  - Pneumonia [Unknown]
  - Cough [Unknown]
  - Diarrhoea [Unknown]
  - Gastritis [Unknown]
  - Upper respiratory tract infection [Unknown]
  - Hepatic function abnormal [Unknown]
  - Neoplasm progression [Unknown]
